FAERS Safety Report 5299321-2 (Version None)
Quarter: 2007Q2

REPORT INFORMATION
  Report Type: 
  Country: None (occurrence: None)
  Receive Date: 20070411
  Receipt Date: 20070411
  Transmission Date: 20071010
  Serious: No
  Sender: FDA-Public Use
  Company Number: None

PATIENT
  Age: 28 Year
  Sex: Female
  Weight: 45.3597 kg

DRUGS (2)
  1. HURRICAINE (BENZOCAINE 20%) SPRAY - BEUTLICH PHARM. [Suspect]
     Indication: PREOPERATIVE CARE
     Dosage: ORAL
     Route: 048
     Dates: start: 20070226
  2. REGLAN [Concomitant]

REACTIONS (3)
  - CYANOSIS [None]
  - DYSPNOEA [None]
  - METHAEMOGLOBINAEMIA [None]
